FAERS Safety Report 10290493 (Version 4)
Quarter: 2014Q4

REPORT INFORMATION
  Report Type: Report from Study
  Country: US (occurrence: US)
  Receive Date: 20140710
  Receipt Date: 20141124
  Transmission Date: 20150528
  Serious: Yes (Life-Threatening, Hospitalization, Other)
  Sender: FDA-Public Use
  Company Number: PHEH2014US013720

PATIENT
  Age: 46 Year
  Sex: Female

DRUGS (3)
  1. PREDNISONE//PREDNISONE ACETATE [Concomitant]
     Dosage: UNK UKN, UNK
     Route: 065
  2. EXTAVIA [Suspect]
     Active Substance: INTERFERON BETA-1B
     Indication: MULTIPLE SCLEROSIS
     Dosage: 0.25 MG, QOD
     Route: 058
     Dates: end: 201406
  3. EXTAVIA [Suspect]
     Active Substance: INTERFERON BETA-1B
     Dosage: UNK
     Route: 058

REACTIONS (5)
  - Bacterial infection [Unknown]
  - Malaise [Unknown]
  - Pain in extremity [Unknown]
  - Necrotising fasciitis [Unknown]
  - Urticaria [Unknown]

NARRATIVE: CASE EVENT DATE: 201406
